FAERS Safety Report 9775581 (Version 1)
Quarter: 2013Q4

REPORT INFORMATION
  Report Type: Report from Study
  Country: US (occurrence: US)
  Receive Date: 20131220
  Receipt Date: 20131220
  Transmission Date: 20140711
  Serious: Yes (Other)
  Sender: FDA-Public Use
  Company Number: US-ABBVIE-13P-163-1179190-00

PATIENT
  Age: 29 Year
  Sex: Female
  Weight: 87.17 kg

DRUGS (1)
  1. HUMIRA [Suspect]
     Indication: PSORIATIC ARTHROPATHY

REACTIONS (6)
  - Suicidal ideation [Recovered/Resolved]
  - Poor quality sleep [Unknown]
  - Depression [Unknown]
  - Diarrhoea [Unknown]
  - Nasal congestion [Unknown]
  - Cough [Unknown]
